APPROVED DRUG PRODUCT: ENALAPRIL MALEATE AND HYDROCHLOROTHIAZIDE
Active Ingredient: ENALAPRIL MALEATE; HYDROCHLOROTHIAZIDE
Strength: 10MG;25MG
Dosage Form/Route: TABLET;ORAL
Application: A075909 | Product #002 | TE Code: AB
Applicant: SENORES PHARMACEUTICALS INC
Approved: Oct 15, 2001 | RLD: No | RS: No | Type: RX